FAERS Safety Report 4566365-5 (Version None)
Quarter: 2005Q1

REPORT INFORMATION
  Report Type: 
  Country: None (occurrence: None)
  Receive Date: 20050126
  Receipt Date: 20050126
  Transmission Date: 20050727
  Serious: Yes (Other)
  Sender: FDA-Public Use
  Company Number: None

PATIENT
  Age: 54 Year
  Sex: Male
  Weight: 75.8 kg

DRUGS (3)
  1. PHENYTOIN [Suspect]
  2. SULINDAC [Concomitant]
  3. VITAMIN B COMPLEX/VITAMIN C CAP/TAB [Concomitant]

REACTIONS (3)
  - RASH [None]
  - SOMNOLENCE [None]
  - URTICARIA [None]
